FAERS Safety Report 25038194 (Version 4)
Quarter: 2025Q2

REPORT INFORMATION
  Report Type: Spontaneous
  Country: FR (occurrence: FR)
  Receive Date: 20250304
  Receipt Date: 20250430
  Transmission Date: 20250716
  Serious: No
  Sender: PFIZER
  Company Number: FR-PFIZER INC-202500045423

PATIENT
  Age: 10 Year
  Sex: Male

DRUGS (3)
  1. NGENLA [Suspect]
     Active Substance: SOMATROGON-GHLA
     Dosage: 16 MG, WEEKLY
  2. NGENLA [Suspect]
     Active Substance: SOMATROGON-GHLA
     Dosage: 21 MG, WEEKLY
  3. NGENLA [Suspect]
     Active Substance: SOMATROGON-GHLA
     Dosage: 24 MG, WEEKLY

REACTIONS (3)
  - Injection site pain [Unknown]
  - Patient-device incompatibility [Unknown]
  - Product prescribing issue [Unknown]
